FAERS Safety Report 13716904 (Version 1)
Quarter: 2017Q3

REPORT INFORMATION
  Report Type: Spontaneous
  Country: DE (occurrence: DE)
  Receive Date: 20170705
  Receipt Date: 20170705
  Transmission Date: 20171127
  Serious: Yes (Other)
  Sender: FDA-Public Use
  Company Number: DE-SEPTODONT-201704132

PATIENT
  Age: 46 Year
  Sex: Female
  Weight: 86 kg

DRUGS (1)
  1. SEPTANEST MIT EPINEPHRIN 40 MG/ML + 0.01 MG/ML, INJEKTIONSL?SUNG [Suspect]
     Active Substance: ARTICAINE HYDROCHLORIDE\EPINEPHRINE BITARTRATE
     Indication: LOCAL ANAESTHESIA
     Dosage: 1 AMPOULE VIA INTRALIGAMENTAL INFILTRATION ON HEALTHY SITE WITH SEPTOJECT 30G 0.3X25MM
     Route: 004
     Dates: start: 20170619, end: 20170619

REACTIONS (3)
  - Hypoaesthesia [Recovered/Resolved with Sequelae]
  - Facial paralysis [Recovered/Resolved with Sequelae]
  - Eye swelling [Recovered/Resolved with Sequelae]

NARRATIVE: CASE EVENT DATE: 20170619
